FAERS Safety Report 4557077-2 (Version None)
Quarter: 2005Q1

REPORT INFORMATION
  Report Type: 
  Country: None (occurrence: None)
  Receive Date: 20050120
  Receipt Date: 20050117
  Transmission Date: 20050727
  Serious: Yes (Other)
  Sender: FDA-Public Use
  Company Number: GB-GLAXOSMITHKLINE-B0364668A

PATIENT
  Sex: Male

DRUGS (1)
  1. ZYBAN [Suspect]
     Route: 048
     Dates: start: 20010301

REACTIONS (10)
  - ADVERSE EVENT [None]
  - AGGRESSION [None]
  - ANXIETY [None]
  - COORDINATION ABNORMAL [None]
  - FEELING OF DESPAIR [None]
  - IRRITABILITY [None]
  - PANIC ATTACK [None]
  - SENSORY DISTURBANCE [None]
  - SUICIDAL IDEATION [None]
  - THINKING ABNORMAL [None]
